FAERS Safety Report 6826963-2 (Version None)
Quarter: 2010Q3

REPORT INFORMATION
  Report Type: 
  Country: None (occurrence: None)
  Receive Date: 20100709
  Receipt Date: 20100701
  Transmission Date: 20110219
  Serious: Yes (Life-Threatening, Hospitalization, Other)
  Sender: FDA-Public Use
  Company Number: DE-TEVA-239931ISR

PATIENT
  Age: 27 Year
  Sex: Male

DRUGS (3)
  1. MORPHINE [Suspect]
     Route: 048
     Dates: start: 20100403, end: 20100403
  2. FLUNITRAZEPAM [Suspect]
     Indication: POLYSUBSTANCE DEPENDENCE
     Route: 048
     Dates: start: 20100101, end: 20100403
  3. FLUNITRAZEPAM [Suspect]
     Route: 048
     Dates: start: 20100403, end: 20100403

REACTIONS (2)
  - RENAL FAILURE ACUTE [None]
  - RHABDOMYOLYSIS [None]
